FAERS Safety Report 15029359 (Version 3)
Quarter: 2018Q3

REPORT INFORMATION
  Report Type: Spontaneous
  Country: US (occurrence: US)
  Receive Date: 20180619
  Receipt Date: 20180830
  Transmission Date: 20181010
  Serious: No
  Sender: FDA-Public Use
  Company Number: US-LEXICON PHARMACEUTICALS, INC-18-1606-00684

PATIENT
  Sex: Female

DRUGS (13)
  1. TELOTRISTAT ETHYL [Suspect]
     Active Substance: TELOTRISTAT ETHYL
     Indication: CARCINOID SYNDROME
     Route: 048
     Dates: start: 20180425, end: 2018
  2. TRILEPTAL [Concomitant]
     Active Substance: OXCARBAZEPINE
  3. LISINOPRIL. [Concomitant]
     Active Substance: LISINOPRIL
  4. TELOTRISTAT ETHYL [Suspect]
     Active Substance: TELOTRISTAT ETHYL
     Dosage: TAKING 1 OR 2 A DAY
     Route: 048
     Dates: start: 2018, end: 2018
  5. REGULAR INSULIN [Concomitant]
     Active Substance: INSULIN NOS
     Dosage: 100 UNITS
  6. MULTIVITAMIN [Concomitant]
     Active Substance: VITAMINS
  7. LASIX [Concomitant]
     Active Substance: FUROSEMIDE
  8. MAGNESIUM [Concomitant]
     Active Substance: MAGNESIUM
  9. SANDOSTATIN [Concomitant]
     Active Substance: OCTREOTIDE ACETATE
  10. PROBIOTIC [Concomitant]
     Active Substance: PROBIOTICS NOS
  11. VITAMIN B12 [Concomitant]
     Active Substance: CYANOCOBALAMIN
  12. VITAMIN D3 [Concomitant]
     Active Substance: CHOLECALCIFEROL
  13. ANTIVERT [Concomitant]
     Active Substance: MECLIZINE HYDROCHLORIDE

REACTIONS (3)
  - Drug ineffective [Unknown]
  - Depression [Not Recovered/Not Resolved]
  - Drug dose omission [Not Recovered/Not Resolved]

NARRATIVE: CASE EVENT DATE: 2018
